FAERS Safety Report 4757955-5 (Version None)
Quarter: 2005Q3

REPORT INFORMATION
  Report Type: 
  Country: None (occurrence: None)
  Receive Date: 20050830
  Receipt Date: 20050823
  Transmission Date: 20060218
  Serious: Yes (Death)
  Sender: FDA-Public Use
  Company Number: USA-2005-0021089

PATIENT
  Age: 64 Year
  Sex: Female

DRUGS (2)
  1. OXYCONTIN [Suspect]
  2. MORPHINE [Suspect]

REACTIONS (4)
  - INTENTIONAL MISUSE [None]
  - LOSS OF CONSCIOUSNESS [None]
  - LUNG NEOPLASM MALIGNANT [None]
  - MULTIPLE DRUG OVERDOSE [None]
